FAERS Safety Report 8510432 (Version 2)
Quarter: 2013Q1

REPORT INFORMATION
  Report Type: Spontaneous
  Country: US (occurrence: None)
  Receive Date: 20120409
  Receipt Date: 20121212
  Transmission Date: 20140127
  Serious: Yes (Life-Threatening, Hospitalization, Other)
  Sender: FDA-Public Use
  Company Number: ADR-2011-10652

PATIENT
  Sex: Female

DRUGS (1)
  1. LIORESAL [Suspect]
     Indication: MUSCLE SPASTICITY
     Dosage: MCG, DAILY, INTRATH
     Route: 037

REACTIONS (9)
  - Loss of consciousness [None]
  - Overdose [None]
  - Agitation [None]
  - Oedema [None]
  - Lethargy [None]
  - Respiratory rate decreased [None]
  - Vomiting [None]
  - Respiratory depression [None]
  - Accidental overdose [None]
